FAERS Safety Report 7113771-0 (Version None)
Quarter: 2010Q4

REPORT INFORMATION
  Report Type: 
  Country: None (occurrence: None)
  Receive Date: 20101119
  Receipt Date: 20101112
  Transmission Date: 20110411
  Serious: Yes (Other)
  Sender: FDA-Public Use
  Company Number: US-US-EMD SERONO, INC.-7027722

PATIENT
  Sex: Female

DRUGS (4)
  1. REBIF [Suspect]
     Indication: MULTIPLE SCLEROSIS
     Route: 058
     Dates: start: 20100428
  2. AON [Concomitant]
     Indication: MULTIPLE SCLEROSIS
  3. AON [Concomitant]
     Indication: PAIN MANAGEMENT
  4. AON [Concomitant]
     Indication: FLUID REPLACEMENT

REACTIONS (5)
  - EAR HAEMORRHAGE [None]
  - HEADACHE [None]
  - INJECTION SITE ANAESTHESIA [None]
  - INJECTION SITE ERYTHEMA [None]
  - INJECTION SITE HAEMORRHAGE [None]
